FAERS Safety Report 10351476 (Version 2)
Quarter: 2014Q3

REPORT INFORMATION
  Report Type: Spontaneous
  Country: SE (occurrence: SE)
  Receive Date: 20140730
  Receipt Date: 20140804
  Transmission Date: 20150326
  Serious: Yes (Other)
  Sender: FDA-Public Use
  Company Number: PHHY2014SE092125

PATIENT
  Sex: Male

DRUGS (2)
  1. XANOR [Concomitant]
     Active Substance: ALPRAZOLAM
     Indication: PANIC ATTACK
  2. CITALOPRAM [Suspect]
     Active Substance: CITALOPRAM HYDROBROMIDE
     Indication: PANIC ATTACK
     Dosage: 10 MG, UNK

REACTIONS (5)
  - Intentional self-injury [Unknown]
  - Tinnitus [Unknown]
  - Tremor [Unknown]
  - Malaise [Unknown]
  - Suicidal ideation [Unknown]
